FAERS Safety Report 14059293 (Version 1)
Quarter: 2017Q4

REPORT INFORMATION
  Report Type: Report from Study
  Country: US (occurrence: US)
  Receive Date: 20171006
  Receipt Date: 20171006
  Transmission Date: 20180321
  Serious: No
  Sender: FDA-Public Use
  Company Number: US-AMGEN-USASL2017028581

PATIENT
  Age: 78 Year
  Sex: Male

DRUGS (4)
  1. PROLIA [Suspect]
     Active Substance: DENOSUMAB
     Indication: OSTEOPOROSIS
     Dosage: 60 MG, Q6MO
     Route: 058
  2. PROLIA [Suspect]
     Active Substance: DENOSUMAB
     Indication: CALCULUS URINARY
  3. PROLIA [Suspect]
     Active Substance: DENOSUMAB
     Indication: ENDOCRINE DISORDER
  4. PROLIA [Suspect]
     Active Substance: DENOSUMAB
     Indication: METABOLIC DISORDER

REACTIONS (1)
  - Off label use [Unknown]
